FAERS Safety Report 4991575-2 (Version None)
Quarter: 2006Q2

REPORT INFORMATION
  Report Type: 
  Country: None (occurrence: None)
  Receive Date: 20060502
  Receipt Date: 20060419
  Transmission Date: 20061013
  Serious: Yes (Life-Threatening, Other)
  Sender: FDA-Public Use
  Company Number: 2006054567

PATIENT
  Age: 80 Year
  Sex: Female
  Weight: 44.4 kg

DRUGS (32)
  1. SOLU-MEDROL [Suspect]
     Indication: ILL-DEFINED DISORDER
     Dosage: INTRAVENOUS
     Route: 042
     Dates: start: 20050813, end: 20050824
  2. GASMOTIN (MOSAPRIDE CITRATE) [Concomitant]
  3. ASPIRIN [Concomitant]
  4. ANDERM (BUFEXAMAC) [Concomitant]
  5. ULCERMIN (SULCRALFATE) [Concomitant]
  6. POSTERISAN (ESCHERICHIA COLI, LYOPHILIZED, PHENOL) [Concomitant]
  7. BIOFERMIN R (STREPTOCOCCUS FAECALIS) [Concomitant]
  8. NITRODERM [Concomitant]
  9. SULFAMETHOXAZOLE + TRIMETHOPRIM [Concomitant]
  10. DIPRIVAN [Concomitant]
  11. HANP (CARPERITIDE) [Concomitant]
  12. ELASPOL (SIVELESTAT) [Concomitant]
  13. FAMOTIDINE [Concomitant]
  14. OMEPRAZOLE [Concomitant]
  15. TIENAM (CILASTATIN, IMIPENEM) [Concomitant]
  16. CLINDAMYCIN HCL [Concomitant]
  17. PANTOL (DEXPANTHENOL) [Concomitant]
  18. ALBUMIN NORMAL HUMAN SERUM (ALBUMIN NORMAL HUMAN SERUM) [Concomitant]
  19. ATARAX [Concomitant]
  20. FENTANYL CITRATE [Concomitant]
  21. PREDNISOLONE [Concomitant]
  22. HEPARIN ^NOVO^ (HEPARIN SODIUM) [Concomitant]
  23. HUMULIN R [Concomitant]
  24. CIPROFLOXACIN HYDROCHLORIDE [Concomitant]
  25. LASIX [Concomitant]
  26. PRODIF (FOSFLUCONAZOLE) [Concomitant]
  27. XYLOCAINE [Concomitant]
  28. GAMIMUNE N 5% [Concomitant]
  29. MINOCYCLINE HCL [Concomitant]
  30. SULPERAZON (CEFOPERAZONE, SULBACTAM) [Concomitant]
  31. AMIPAREN (AMINO ACIDS NOS) [Concomitant]
  32. NEOLAMIN MULTI V (VITAMINS NOS) [Concomitant]

REACTIONS (2)
  - GASTROINTESTINAL HAEMORRHAGE [None]
  - SHOCK HAEMORRHAGIC [None]
